FAERS Safety Report 10268563 (Version 1)
Quarter: 2014Q2

REPORT INFORMATION
  Report Type: Report from Study
  Country: US (occurrence: None)
  Receive Date: 20140625
  Receipt Date: 20140625
  Transmission Date: 20141212
  Serious: Yes (Other)
  Sender: FDA-Public Use
  Company Number: 153306

PATIENT
  Sex: Female
  Weight: 61 kg

DRUGS (2)
  1. CYTARABINE FOR INJ. USP 100MG-BEDFORD LABS, INC. [Suspect]
     Indication: ACUTE MYELOID LEUKAEMIA
     Dates: start: 20140531, end: 20140607
  2. DAUNORUBICIN [Concomitant]

REACTIONS (2)
  - Hypotension [None]
  - Febrile neutropenia [None]
